FAERS Safety Report 21419072 (Version 1)
Quarter: 2022Q4

REPORT INFORMATION
  Report Type: Spontaneous
  Country: CN (occurrence: CN)
  Receive Date: 20221006
  Receipt Date: 20221006
  Transmission Date: 20230113
  Serious: Yes (Other)
  Sender: FDA-Public Use
  Company Number: CN-SLATE RUN PHARMACEUTICALS-22CN001356

PATIENT

DRUGS (7)
  1. AZITHROMYCIN [Suspect]
     Active Substance: AZITHROMYCIN
     Indication: Antibiotic prophylaxis
     Dosage: 0.5 GRAM, QD
     Route: 048
     Dates: start: 20210512, end: 202105
  2. AZITHROMYCIN [Suspect]
     Active Substance: AZITHROMYCIN
     Dosage: 0.5 GRAM, QD
     Route: 042
     Dates: start: 20210510, end: 20210511
  3. DEXAMETHASONE [Concomitant]
     Active Substance: DEXAMETHASONE
     Indication: Maternal therapy to enhance foetal lung maturity
     Dosage: UNK
     Route: 030
     Dates: start: 20210510
  4. CEFUROXIME SODIUM [Concomitant]
     Active Substance: CEFUROXIME SODIUM
     Indication: Antibiotic prophylaxis
     Dosage: 1.5 GRAM, QD
     Route: 042
     Dates: start: 20210510, end: 20210511
  5. CEFUROXIME AXETIL [Concomitant]
     Active Substance: CEFUROXIME AXETIL
     Indication: Antibiotic prophylaxis
     Dosage: 0.25 GRAM, BID
     Route: 048
     Dates: start: 202105, end: 202105
  6. PENICILLIN G [Concomitant]
     Active Substance: PENICILLIN G
     Indication: Beta haemolytic streptococcal infection
     Dosage: 2400 MILLIGRAM PER KILOGRAM
     Route: 042
     Dates: start: 202105
  7. PENICILLIN G [Concomitant]
     Active Substance: PENICILLIN G
     Dosage: 4800 MILLIGRAM PER KILOGRAM
     Route: 042
     Dates: start: 202105, end: 202105

REACTIONS (4)
  - Pyrexia [Unknown]
  - Galactostasis [Unknown]
  - Mastitis [Unknown]
  - Maternal exposure during pregnancy [Recovered/Resolved]

NARRATIVE: CASE EVENT DATE: 20210101
